FAERS Safety Report 8971286 (Version 2)
Quarter: 2013Q2

REPORT INFORMATION
  Report Type: Spontaneous
  Country: CH (occurrence: CH)
  Receive Date: 20121218
  Receipt Date: 20130514
  Transmission Date: 20140414
  Serious: Yes (Hospitalization)
  Sender: FDA-Public Use
  Company Number: CH-ROCHE-1164867

PATIENT
  Age: 71 Year
  Sex: Female
  Weight: 68 kg

DRUGS (8)
  1. MABTHERA [Suspect]
     Indication: NON-HODGKIN^S LYMPHOMA
     Route: 041
     Dates: start: 20120911, end: 20120911
  2. MABTHERA [Suspect]
     Route: 041
     Dates: start: 20121009, end: 20121009
  3. RIBOMUSTIN [Concomitant]
     Indication: NON-HODGKIN^S LYMPHOMA
     Route: 042
     Dates: start: 20120911, end: 20120911
  4. METHYLPREDNISOLONE SODIUM SUCCINATE [Concomitant]
     Indication: PROPHYLAXIS
     Route: 041
     Dates: start: 20121009, end: 20121011
  5. ONDANSETRON [Concomitant]
     Indication: NAUSEA
     Route: 041
     Dates: start: 20121009, end: 20121009
  6. ONDANSETRON [Concomitant]
     Indication: VOMITING
  7. DAFALGAN [Concomitant]
     Route: 048
     Dates: start: 20121009, end: 20121009
  8. TAVEGYL [Concomitant]
     Route: 041
     Dates: start: 20121009, end: 20121011

REACTIONS (10)
  - Type I hypersensitivity [Recovered/Resolved]
  - Anaphylactoid reaction [Recovered/Resolved]
  - Chest discomfort [Recovered/Resolved]
  - Feeling hot [Recovered/Resolved]
  - Dyspnoea [Recovered/Resolved]
  - Back pain [Recovering/Resolving]
  - Face oedema [Recovered/Resolved]
  - Sudden hearing loss [Recovered/Resolved]
  - Diarrhoea [Recovered/Resolved]
  - Nausea [Recovered/Resolved]
